FAERS Safety Report 25851687 (Version 1)
Quarter: 2025Q3

REPORT INFORMATION
  Report Type: Spontaneous
  Country: BR (occurrence: BR)
  Receive Date: 20250926
  Receipt Date: 20250926
  Transmission Date: 20251020
  Serious: No
  Sender: ANI
  Company Number: BR-ANIPHARMA-030711

PATIENT
  Sex: Female

DRUGS (6)
  1. FLUVOXAMINE MALEATE [Suspect]
     Active Substance: FLUVOXAMINE MALEATE
     Indication: Anxiety
  2. PAROXETINE [Concomitant]
     Active Substance: PAROXETINE
     Indication: Anxiety
  3. PAROXETINE [Concomitant]
     Active Substance: PAROXETINE
     Indication: Depression
  4. FLUVOXAMINE MALEATE [Suspect]
     Active Substance: FLUVOXAMINE MALEATE
     Indication: Depression
  5. FLUVOXAMINE MALEATE [Suspect]
     Active Substance: FLUVOXAMINE MALEATE
     Indication: Anxiety
  6. FLUVOXAMINE MALEATE [Suspect]
     Active Substance: FLUVOXAMINE MALEATE
     Indication: Depression

REACTIONS (8)
  - Condition aggravated [Unknown]
  - Dizziness [Unknown]
  - Somnolence [Unknown]
  - Agitation [Unknown]
  - Nervousness [Unknown]
  - Tremor [Unknown]
  - Product prescribing error [Unknown]
  - Drug ineffective [Unknown]
